FAERS Safety Report 5091963-2 (Version None)
Quarter: 2006Q3

REPORT INFORMATION
  Report Type: 
  Country: None (occurrence: None)
  Receive Date: 20060824
  Receipt Date: 20060816
  Transmission Date: 20061208
  Serious: No
  Sender: FDA-Public Use
  Company Number: 2006-144881-NL

PATIENT
  Age: 24 Year
  Sex: Female

DRUGS (1)
  1. ETONOGESTREL [Suspect]
     Dosage: DF;
     Dates: start: 20040130

REACTIONS (3)
  - HYPERPROLACTINAEMIA [None]
  - METRORRHAGIA [None]
  - PITUITARY TUMOUR BENIGN [None]
